FAERS Safety Report 10549463 (Version 1)
Quarter: 2014Q4

REPORT INFORMATION
  Report Type: Report from Study
  Country: None (occurrence: None)
  Receive Date: 20141016
  Receipt Date: 20141016
  Transmission Date: 20150529
  Serious: No
  Sender: FDA-Public Use
  Company Number: CABO-14004625

PATIENT
  Age: 60 Year
  Sex: Male

DRUGS (1)
  1. COMETRIQ [Suspect]
     Active Substance: CABOZANTINIB S-MALATE
     Indication: LUNG NEOPLASM MALIGNANT
     Route: 048
     Dates: start: 20140805

REACTIONS (6)
  - Oral candidiasis [None]
  - Oropharyngeal pain [None]
  - Fatigue [None]
  - Dyspepsia [None]
  - Nausea [None]
  - Off label use [None]

NARRATIVE: CASE EVENT DATE: 2014
